FAERS Safety Report 17668349 (Version 2)
Quarter: 2020Q2

REPORT INFORMATION
  Report Type: Spontaneous
  Country: IT (occurrence: IT)
  Receive Date: 20200414
  Receipt Date: 20200420
  Transmission Date: 20200713
  Serious: Yes (Hospitalization)
  Sender: FDA-Public Use
  Company Number: IT-AUROBINDO-AUR-APL-2020-017815

PATIENT
  Age: 48 Year
  Sex: Female

DRUGS (2)
  1. CARBOPLATIN. [Suspect]
     Active Substance: CARBOPLATIN
     Indication: NEOPLASM MALIGNANT
     Dosage: 500 MILLIGRAM, CYCLICAL
     Route: 042
     Dates: start: 20191105
  2. ENOXAPARIN SODIUM. [Suspect]
     Active Substance: ENOXAPARIN SODIUM
     Indication: EMBOLISM
     Dosage: 4000 DOSAGE FORM, ONCE A DAY
     Route: 065
     Dates: start: 20191022

REACTIONS (3)
  - Anaemia [Unknown]
  - Vaginal haemorrhage [Unknown]
  - Bloody discharge [Unknown]

NARRATIVE: CASE EVENT DATE: 20200102
